FAERS Safety Report 9961904 (Version 1)
Quarter: 2014Q1

REPORT INFORMATION
  Report Type: Report from Study
  Country: US (occurrence: US)
  Receive Date: 20140305
  Receipt Date: 20140305
  Transmission Date: 20141002
  Serious: No
  Sender: FDA-Public Use
  Company Number: US-ABBVIE-13P-163-1113559-00

PATIENT
  Age: 18 Year
  Sex: Female

DRUGS (5)
  1. HUMIRA [Suspect]
     Indication: CROHN^S DISEASE
     Dates: start: 201302
  2. PENTASA [Concomitant]
     Indication: CROHN^S DISEASE
  3. REGLAN [Concomitant]
     Indication: GASTROOESOPHAGEAL REFLUX DISEASE
  4. PROTONIX [Concomitant]
     Indication: GASTROOESOPHAGEAL REFLUX DISEASE
     Dosage: 40 MG DAILY
  5. MELATONIN [Concomitant]
     Indication: INSOMNIA
     Dosage: AT BEDTIME

REACTIONS (4)
  - Injection site erythema [Recovering/Resolving]
  - Injection site pruritus [Recovering/Resolving]
  - Injection site papule [Recovering/Resolving]
  - Injection site warmth [Recovering/Resolving]
